FAERS Safety Report 8027809-X (Version None)
Quarter: 2012Q1

REPORT INFORMATION
  Report Type: 
  Country: None (occurrence: None)
  Receive Date: 20120106
  Receipt Date: 20111223
  Transmission Date: 20120608
  Serious: Yes (Hospitalization, Other)
  Sender: FDA-Public Use
  Company Number: DE-UCBSA-040155

PATIENT
  Sex: Female
  Weight: 3.29 kg

DRUGS (4)
  1. ACYCLOVIR [Concomitant]
     Indication: GENITAL HERPES
     Route: 064
  2. KORTISON [Concomitant]
     Indication: RHEUMATOID ARTHRITIS
     Dosage: THERPAY ON 01/MAR/2011 AND 12/APR/2011
     Route: 064
     Dates: start: 20110301
  3. CIMZIA [Suspect]
     Indication: RHEUMATOID ARTHRITIS
     Route: 063
     Dates: start: 20110801, end: 20110826
  4. CIMZIA [Suspect]
     Route: 064
     Dates: start: 20110322, end: 20110816

REACTIONS (3)
  - EXPOSURE DURING BREAST FEEDING [None]
  - BRADYCARDIA [None]
  - FOETAL EXPOSURE DURING PREGNANCY [None]
